FAERS Safety Report 5225488-8 (Version None)
Quarter: 2007Q1

REPORT INFORMATION
  Report Type: 
  Country: None (occurrence: None)
  Receive Date: 20070131
  Receipt Date: 20070119
  Transmission Date: 20070707
  Serious: Yes (Disabling, Other)
  Sender: FDA-Public Use
  Company Number: AU-PFIZER INC-2006154161

PATIENT
  Sex: Male
  Weight: 68 kg

DRUGS (8)
  1. DIFLUCAN [Suspect]
     Indication: ORAL CANDIDIASIS
     Route: 048
     Dates: start: 20061114, end: 20061202
  2. VENTOLIN [Concomitant]
     Route: 055
  3. SYMBICORT [Concomitant]
     Route: 055
  4. ACETYLSALICYLIC ACID [Concomitant]
  5. PROMETHAZINE HCL [Concomitant]
  6. SPIRIVA [Concomitant]
     Route: 055
  7. CELESTONE [Concomitant]
     Route: 061
  8. PREDNISOLONE [Concomitant]

REACTIONS (5)
  - DYSPEPSIA [None]
  - EYE SWELLING [None]
  - JAW DISORDER [None]
  - PAINFUL RESPONSE TO NORMAL STIMULI [None]
  - RASH [None]
